FAERS Safety Report 20393629 (Version 3)
Quarter: 2022Q1

REPORT INFORMATION
  Report Type: Report from Study
  Country: JP (occurrence: JP)
  Receive Date: 20220128
  Receipt Date: 20220315
  Transmission Date: 20220424
  Serious: Yes (Other)
  Sender: FDA-Public Use
  Company Number: JP-PFIZER INC-202200056907

PATIENT
  Age: 68 Year
  Sex: Male
  Weight: 60.2 kg

DRUGS (10)
  1. TALAZOPARIB [Suspect]
     Active Substance: TALAZOPARIB
     Indication: Prostate cancer metastatic
     Dosage: UNK UNK, 1X/DAY
     Route: 048
     Dates: start: 20200826, end: 20201020
  2. TALAZOPARIB [Suspect]
     Active Substance: TALAZOPARIB
     Dosage: UNK UNK, 1X/DAY
     Route: 048
     Dates: start: 20201104, end: 20201117
  3. TALAZOPARIB [Suspect]
     Active Substance: TALAZOPARIB
     Dosage: UNK UNK, 1X/DAY
     Route: 048
     Dates: start: 20201202, end: 20201215
  4. TALAZOPARIB [Suspect]
     Active Substance: TALAZOPARIB
     Dosage: UNK UNK, 1X/DAY
     Route: 048
     Dates: start: 20201223, end: 20210105
  5. TALAZOPARIB [Suspect]
     Active Substance: TALAZOPARIB
     Dosage: UNK UNK, 1X/DAY
     Route: 048
     Dates: start: 20210113, end: 20210126
  6. TALAZOPARIB [Suspect]
     Active Substance: TALAZOPARIB
     Dosage: DOSE REDUCED, 1X/DAY
     Route: 048
     Dates: start: 20210210, end: 20210406
  7. TALAZOPARIB [Suspect]
     Active Substance: TALAZOPARIB
     Dosage: DOSE REDUCED, 1X/DAY
     Route: 048
     Dates: start: 20210421, end: 20210629
  8. TALAZOPARIB [Suspect]
     Active Substance: TALAZOPARIB
     Dosage: AT THE MINIMUM DOSE, 1X/DAY
     Route: 048
     Dates: start: 20210728, end: 20210824
  9. ENZALUTAMIDE [Suspect]
     Active Substance: ENZALUTAMIDE
     Indication: Prostate cancer metastatic
     Dosage: 160 MG, 1X/DAY
     Route: 048
     Dates: start: 20200826
  10. URSODIOL [Concomitant]
     Active Substance: URSODIOL
     Indication: Prophylaxis
     Dosage: 100 MG, 3X/DAY
     Route: 048
     Dates: start: 20200722

REACTIONS (2)
  - Second primary malignancy [Not Recovered/Not Resolved]
  - Myelodysplastic syndrome [Not Recovered/Not Resolved]

NARRATIVE: CASE EVENT DATE: 20220112
